FAERS Safety Report 6115287-7 (Version None)
Quarter: 2009Q1

REPORT INFORMATION
  Report Type: 
  Country: None (occurrence: None)
  Receive Date: 20090313
  Receipt Date: 20090312
  Transmission Date: 20090719
  Serious: Yes (Life-Threatening, Hospitalization, Other)
  Sender: FDA-Public Use
  Company Number: US-WYE-H08557309

PATIENT
  Age: 71 Year
  Sex: Female
  Weight: 121.67 kg

DRUGS (8)
  1. CORDARONE [Suspect]
     Dosage: DOSE UNKNOWN
     Route: 065
  2. ROMAZICON [Suspect]
     Route: 042
     Dates: start: 20090120, end: 20090120
  3. HYDROCHLOROTHIAZIDE [Concomitant]
     Dosage: DOSE UNKNOWN
     Route: 065
     Dates: start: 20090120, end: 20090120
  4. CLONIDINE [Concomitant]
     Dosage: DOSE UNKNOWN
     Route: 065
     Dates: start: 20090120, end: 20090120
  5. HEPARIN SODIUM [Concomitant]
     Dosage: DOSE UNKNOWN
     Route: 065
     Dates: start: 20090120, end: 20090120
  6. CLOPIDOGREL [Concomitant]
     Dosage: DOSE UNKNOWN
     Route: 065
     Dates: start: 20090120
  7. FENTANYL-25 [Suspect]
     Dosage: DOSE UNKNOWN
     Route: 065
  8. NEOSYNEPHRINE BADRIAL [Concomitant]
     Dosage: DOSE UNKNOWN
     Route: 065
     Dates: start: 20090120

REACTIONS (2)
  - HEPATIC ENZYME INCREASED [None]
  - SEDATION [None]
